FAERS Safety Report 5168040-5 (Version None)
Quarter: 2006Q4

REPORT INFORMATION
  Report Type: 
  Country: None (occurrence: None)
  Receive Date: 20061208
  Receipt Date: 20060413
  Transmission Date: 20070319
  Serious: No
  Sender: FDA-Public Use
  Company Number: US-GLAXOSMITHKLINE-A0601695A

PATIENT
  Age: 69 Year
  Sex: Female

DRUGS (3)
  1. AVANDAMET [Suspect]
     Dosage: 1TAB PER DAY
     Route: 048
  2. VITAMINS [Concomitant]
  3. ENZYMES [Concomitant]

REACTIONS (3)
  - BLOOD GLUCOSE INCREASED [None]
  - LOCAL SWELLING [None]
  - SINUSITIS [None]
